FAERS Safety Report 11168266 (Version 1)
Quarter: 2015Q2

REPORT INFORMATION
  Report Type: Spontaneous
  Country: JP (occurrence: JP)
  Receive Date: 20150605
  Receipt Date: 20150605
  Transmission Date: 20150821
  Serious: Yes (Hospitalization, Other)
  Sender: FDA-Public Use
  Company Number: JP-ELI_LILLY_AND_COMPANY-JP201505010666

PATIENT
  Age: 35 Year
  Sex: Female
  Weight: 62 kg

DRUGS (1)
  1. HUMULIN R [Suspect]
     Active Substance: INSULIN HUMAN
     Indication: TYPE 1 DIABETES MELLITUS
     Dosage: UNK
     Route: 058

REACTIONS (17)
  - Diabetic retinopathy [Unknown]
  - Hypoxia [Unknown]
  - Maternal exposure before pregnancy [Unknown]
  - Maternal exposure during pregnancy [Unknown]
  - Hyperemesis gravidarum [Unknown]
  - Refractory cytopenia with unilineage dysplasia [Unknown]
  - Diabetic neuropathy [Unknown]
  - Hypoproteinaemia [Unknown]
  - Abortion threatened [Recovered/Resolved]
  - Hypertensive nephropathy [Unknown]
  - Blood glucose increased [Recovered/Resolved]
  - Hypophagia [Unknown]
  - Pulmonary oedema [Unknown]
  - Blood glucose fluctuation [Unknown]
  - Diabetic nephropathy [Unknown]
  - Hypertension [Unknown]
  - Nephrotic syndrome [Recovering/Resolving]
